FAERS Safety Report 19962867 (Version 1)
Quarter: 2021Q4

REPORT INFORMATION
  Report Type: Spontaneous
  Country: US (occurrence: US)
  Receive Date: 20211017
  Receipt Date: 20211017
  Transmission Date: 20220304
  Serious: Yes (Disabling)
  Sender: FDA-Public Use
  Company Number: None

PATIENT
  Age: 50 Year
  Sex: Male
  Weight: 87.75 kg

DRUGS (2)
  1. LOTRIMIN AF ANTIFUNGAL [Suspect]
     Active Substance: MICONAZOLE NITRATE
     Indication: Fungal infection
     Dosage: ?          QUANTITY:1 SPRAY(S);
     Route: 061
     Dates: start: 20210801, end: 20210814
  2. LOTRIMIN AF ANTIFUNGAL [Suspect]
     Active Substance: MICONAZOLE NITRATE
     Indication: Fungal infection
     Dosage: ?          QUANTITY:1 SPRAY(S);
     Route: 061
     Dates: start: 20210801, end: 20210814

REACTIONS (1)
  - Rash [None]

NARRATIVE: CASE EVENT DATE: 20210807
